FAERS Safety Report 6236138-6 (Version None)
Quarter: 2009Q2

REPORT INFORMATION
  Report Type: 
  Country: None (occurrence: None)
  Receive Date: 20090619
  Receipt Date: 20090611
  Transmission Date: 20091009
  Serious: Yes (Other)
  Sender: FDA-Public Use
  Company Number: US-B.I. PHARMACEUTICALS,INC./RIDGEFIELD-2009-BP-06427BP

PATIENT
  Sex: Male

DRUGS (3)
  1. FLOMAX [Suspect]
     Indication: BENIGN PROSTATIC HYPERPLASIA
     Dosage: .4MG
     Dates: start: 20040201, end: 20090101
  2. AVALIDE 150-12 [Concomitant]
     Dosage: 5MG
  3. DOXAZOSIN MESYLATE [Concomitant]

REACTIONS (1)
  - MALIGNANT PALATE NEOPLASM [None]
